FAERS Safety Report 11163059 (Version 1)
Quarter: 2015Q2

REPORT INFORMATION
  Report Type: Spontaneous
  Country: US (occurrence: None)
  Receive Date: 20150603
  Receipt Date: 20150603
  Transmission Date: 20150821
  Serious: Yes (Life-Threatening, Hospitalization)
  Sender: FDA-Public Use
  Company Number: None

PATIENT
  Age: 63 Year
  Sex: Male
  Weight: 147.6 kg

DRUGS (1)
  1. ALPRAZOLAM. [Suspect]
     Active Substance: ALPRAZOLAM
     Indication: RESPIRATORY FAILURE
     Route: 048
     Dates: start: 20150511, end: 20150511

REACTIONS (4)
  - Hypoxia [None]
  - Respiratory depression [None]
  - Somnolence [None]
  - Depressed level of consciousness [None]

NARRATIVE: CASE EVENT DATE: 20150511
